FAERS Safety Report 5362045-7 (Version None)
Quarter: 2007Q2

REPORT INFORMATION
  Report Type: 
  Country: None (occurrence: None)
  Receive Date: 20070615
  Receipt Date: 20070615
  Transmission Date: 20071010
  Serious: Yes (Other)
  Sender: FDA-Public Use
  Company Number: None

PATIENT
  Age: 52 Year
  Sex: Female
  Weight: 88.4514 kg

DRUGS (1)
  1. ATENOLOL [Suspect]
     Indication: HEART RATE INCREASED
     Dosage: 1/2TAB DAILY PO
     Route: 048
     Dates: start: 20021117, end: 20061107

REACTIONS (1)
  - ALOPECIA [None]
